FAERS Safety Report 7985812-X (Version None)
Quarter: 2011Q4

REPORT INFORMATION
  Report Type: 
  Country: None (occurrence: None)
  Receive Date: 20111214
  Receipt Date: 20111130
  Transmission Date: 20120403
  Serious: Yes (Death, Hospitalization, Congenital Anomaly)
  Sender: FDA-Public Use
  Company Number: 2011MA017049

PATIENT
  Sex: Male

DRUGS (11)
  1. DILTIAZEM HCL [Concomitant]
  2. NEXIUM [Concomitant]
  3. TOPROL-XL [Concomitant]
  4. COUMADIN [Concomitant]
  5. APAP TAB [Concomitant]
  6. ZESTRIL [Concomitant]
  7. AMOXICILLIN [Concomitant]
  8. DIGOXIN [Suspect]
     Indication: ATRIAL FIBRILLATION
     Dosage: 0.25 MG;QD;PO
     Route: 048
     Dates: start: 20041221, end: 20080109
  9. KEFLEX [Concomitant]
  10. PRILOSEC [Concomitant]
  11. WELLBUTRIN [Concomitant]

REACTIONS (46)
  - PANIC ATTACK [None]
  - BLOOD CHOLESTEROL INCREASED [None]
  - ANXIETY [None]
  - BACK PAIN [None]
  - SKIN DISORDER [None]
  - TREATMENT NONCOMPLIANCE [None]
  - PULMONARY VALVE INCOMPETENCE [None]
  - SUDDEN DEATH [None]
  - URINARY TRACT INFECTION [None]
  - RENAL FAILURE [None]
  - PYREXIA [None]
  - TRICUSPID VALVE INCOMPETENCE [None]
  - GASTROOESOPHAGEAL REFLUX DISEASE [None]
  - DEPRESSED MOOD [None]
  - RENAL CYST HAEMORRHAGE [None]
  - PROTHROMBIN TIME PROLONGED [None]
  - CARDIOMEGALY [None]
  - OROPHARYNGEAL PAIN [None]
  - RENAL FAILURE CHRONIC [None]
  - RIGHT VENTRICULAR HYPERTROPHY [None]
  - ANHEDONIA [None]
  - CARDIAC VALVE DISEASE [None]
  - ATRIAL FIBRILLATION [None]
  - ATRIAL THROMBOSIS [None]
  - DIZZINESS POSTURAL [None]
  - HYPERTENSION [None]
  - RECTAL HAEMORRHAGE [None]
  - BLOOD TRIGLYCERIDES INCREASED [None]
  - DEPRESSION [None]
  - SICK SINUS SYNDROME [None]
  - WOUND NECROSIS [None]
  - HYPOAESTHESIA [None]
  - HIGH DENSITY LIPOPROTEIN DECREASED [None]
  - FATIGUE [None]
  - IRRITABILITY [None]
  - INSOMNIA [None]
  - CARDIOMYOPATHY [None]
  - FLANK PAIN [None]
  - HAEMATURIA [None]
  - INTERNATIONAL NORMALISED RATIO DECREASED [None]
  - MITRAL VALVE INCOMPETENCE [None]
  - ATRIOVENTRICULAR BLOCK FIRST DEGREE [None]
  - QRS AXIS ABNORMAL [None]
  - AORTIC VALVE INCOMPETENCE [None]
  - VENTRICULAR EXTRASYSTOLES [None]
  - IATROGENIC INJURY [None]
